FAERS Safety Report 16643978 (Version 4)
Quarter: 2019Q4

REPORT INFORMATION
  Report Type: Report from Study
  Country: DK (occurrence: DK)
  Receive Date: 20190729
  Receipt Date: 20191018
  Transmission Date: 20200122
  Serious: Yes (Hospitalization)
  Sender: FDA-Public Use
  Company Number: DK-CELGENEUS-DNK-20190708996

PATIENT
  Age: 75 Year
  Sex: Male
  Weight: 105.8 kg

DRUGS (24)
  1. TRAMADOL. [Concomitant]
     Active Substance: TRAMADOL
     Indication: PAIN PROPHYLAXIS
     Route: 048
     Dates: start: 20190430
  2. FUROSEMID [Concomitant]
     Active Substance: FUROSEMIDE
     Indication: ATRIAL FLUTTER
     Dosage: 20 MILLIGRAM
     Route: 048
     Dates: start: 20160313
  3. FUROSEMID [Concomitant]
     Active Substance: FUROSEMIDE
     Indication: OEDEMA PERIPHERAL
  4. METOPROLOL. [Concomitant]
     Active Substance: METOPROLOL
     Indication: HYPERTENSION
  5. VICTOZA [Concomitant]
     Active Substance: LIRAGLUTIDE
     Indication: TYPE 2 DIABETES MELLITUS
     Dosage: 1.2 MILLIGRAM
     Route: 058
     Dates: start: 20181127
  6. BERODUAL [Concomitant]
     Active Substance: FENOTEROL HYDROBROMIDE\IPRATROPIUM BROMIDE
     Indication: BRONCHOSPASM
     Dosage: 1.25+0.5 MG
     Route: 055
     Dates: start: 20190325
  7. BERODUAL [Concomitant]
     Active Substance: FENOTEROL HYDROBROMIDE\IPRATROPIUM BROMIDE
     Indication: BRONCHIAL OBSTRUCTION
  8. BERODUAL [Concomitant]
     Active Substance: FENOTEROL HYDROBROMIDE\IPRATROPIUM BROMIDE
     Indication: BRONCHITIS
  9. DIGOXIN. [Concomitant]
     Active Substance: DIGOXIN
     Indication: ATRIAL FLUTTER
     Dosage: 187.5 MICROGRAM
     Route: 048
     Dates: start: 20160303
  10. METOPROLOL. [Concomitant]
     Active Substance: METOPROLOL
     Indication: ATRIAL FLUTTER
     Dosage: 50 MILLIGRAM
     Route: 048
     Dates: start: 20170818
  11. MACROGOL [Concomitant]
     Active Substance: POLYETHYLENE GLYCOLS
     Indication: CONSTIPATION
     Route: 048
     Dates: start: 20190204
  12. TRAMADOL. [Concomitant]
     Active Substance: TRAMADOL
     Indication: NECROSIS
     Dosage: 200 MILLIGRAM
     Route: 048
     Dates: start: 20190501, end: 20190727
  13. ISPAGHULA [Concomitant]
     Active Substance: PLANTAGO OVATA SEED
     Indication: CONSTIPATION
     Dosage: 9 CAPSULE
     Route: 048
     Dates: start: 20151227
  14. NOVORAPID [Concomitant]
     Active Substance: INSULIN ASPART
     Indication: TYPE 2 DIABETES MELLITUS
     Dosage: 2-10 IU
     Route: 058
     Dates: start: 20181128
  15. AG-221 [Suspect]
     Active Substance: ENASIDENIB
     Indication: ACUTE MYELOID LEUKAEMIA
     Dosage: 100 MILLIGRAM
     Route: 048
     Dates: start: 20190624
  16. TRESIBA [Concomitant]
     Active Substance: INSULIN DEGLUDEC
     Indication: TYPE 2 DIABETES MELLITUS
     Dosage: 200 IU (INTERNATIONAL UNIT)
     Route: 058
     Dates: start: 20180705
  17. ALLOPURINOL. [Concomitant]
     Active Substance: ALLOPURINOL
     Indication: PROPHYLAXIS
     Dosage: 300 MILLIGRAM
     Route: 048
     Dates: start: 20190624
  18. MACROGOL [Concomitant]
     Active Substance: POLYETHYLENE GLYCOLS
     Route: 048
     Dates: start: 20190503
  19. FELDEN GEL [Concomitant]
     Indication: BRONCHIAL OBSTRUCTION
     Route: 062
     Dates: start: 20190501, end: 20190723
  20. FELDEN GEL [Concomitant]
     Indication: NECROSIS
  21. CALCIUM [Concomitant]
     Active Substance: CALCIUM
     Indication: PROPHYLAXIS
     Dosage: 400 MILLIGRAM
     Route: 048
     Dates: start: 20190122
  22. OMNIX U/VITAMIN K [Concomitant]
     Indication: PROPHYLAXIS
     Dosage: 1 TABLET
     Route: 048
     Dates: start: 20190325
  23. METOCLOPRAMID [Concomitant]
     Active Substance: METOCLOPRAMIDE
     Indication: NAUSEA
     Route: 048
     Dates: start: 20190527
  24. METOCLOPRAMID [Concomitant]
     Active Substance: METOCLOPRAMIDE
     Indication: PROPHYLAXIS OF NAUSEA AND VOMITING

REACTIONS (2)
  - Febrile neutropenia [Recovered/Resolved]
  - Staphylococcal sepsis [Unknown]

NARRATIVE: CASE EVENT DATE: 20190722
